FAERS Safety Report 5669497-3 (Version None)
Quarter: 2008Q1

REPORT INFORMATION
  Report Type: 
  Country: None (occurrence: None)
  Receive Date: 20080317
  Receipt Date: 20080229
  Transmission Date: 20080703
  Serious: Yes (Life-Threatening, Hospitalization, Disabling, Other)
  Sender: FDA-Public Use
  Company Number: JP-ASTRAZENECA-2008AP00374

PATIENT
  Age: 14460 Day
  Sex: Male

DRUGS (11)
  1. SEROQUEL [Suspect]
     Route: 048
     Dates: start: 20071129
  2. LUVOX [Suspect]
     Indication: OBSESSIVE-COMPULSIVE DISORDER
     Route: 048
     Dates: start: 20071002, end: 20071129
  3. LUVOX [Suspect]
     Route: 048
     Dates: end: 20071205
  4. LUVOX [Suspect]
     Route: 048
     Dates: start: 20071206, end: 20071226
  5. LUVOX [Suspect]
     Route: 048
     Dates: start: 20071227
  6. LUVOX [Suspect]
     Route: 048
     Dates: end: 20080106
  7. PAXIL [Suspect]
     Indication: OBSESSIVE-COMPULSIVE DISORDER
     Route: 048
     Dates: start: 20071002, end: 20071206
  8. PAXIL [Suspect]
     Route: 048
     Dates: start: 20071227, end: 20080105
  9. SELBEX [Concomitant]
     Indication: GASTRITIS
     Route: 048
     Dates: start: 20071002, end: 20080106
  10. NITRAZEPAM [Concomitant]
     Indication: OBSESSIVE-COMPULSIVE DISORDER
     Route: 048
     Dates: start: 20071002, end: 20080106
  11. MYSLEE [Concomitant]
     Indication: OBSESSIVE-COMPULSIVE DISORDER
     Route: 048
     Dates: start: 20071002, end: 20080106

REACTIONS (3)
  - CONVULSION [None]
  - LIVER DISORDER [None]
  - OVERDOSE [None]
